FAERS Safety Report 18379921 (Version 1)
Quarter: 2020Q4

REPORT INFORMATION
  Report Type: Spontaneous
  Country: US (occurrence: US)
  Receive Date: 20201013
  Receipt Date: 20201013
  Transmission Date: 20210114
  Serious: No
  Sender: FDA-Public Use
  Company Number: US-ENDO PHARMACEUTICALS INC-2019-109261

PATIENT
  Age: 67 Year
  Sex: Female

DRUGS (5)
  1. LENZIMA [Concomitant]
     Indication: PRODUCT USED FOR UNKNOWN INDICATION
  2. LEVOTHYROXINE. [Concomitant]
     Active Substance: LEVOTHYROXINE
     Indication: PRODUCT USED FOR UNKNOWN INDICATION
  3. CHOLESTYRAMINE LIGHT [Suspect]
     Active Substance: CHOLESTYRAMINE
     Indication: DIARRHOEA
     Dosage: 1 SCOOP WITH ANY 2-4 OZ OF LIQUID DAILY
     Route: 048
     Dates: start: 20191027, end: 20191027
  4. CHOLESTYRAMINE LIGHT [Suspect]
     Active Substance: CHOLESTYRAMINE
     Indication: ABDOMINAL DISCOMFORT
  5. KEYTRUDA [Concomitant]
     Active Substance: PEMBROLIZUMAB
     Indication: PRODUCT USED FOR UNKNOWN INDICATION

REACTIONS (5)
  - Product solubility abnormal [Not Recovered/Not Resolved]
  - Off label use [Recovered/Resolved]
  - Retching [Not Recovered/Not Resolved]
  - Product use complaint [Not Recovered/Not Resolved]
  - Product substitution issue [Not Recovered/Not Resolved]

NARRATIVE: CASE EVENT DATE: 20191027
